FAERS Safety Report 15326481 (Version 1)
Quarter: 2018Q3

REPORT INFORMATION
  Report Type: Spontaneous
  Country: US (occurrence: US)
  Receive Date: 20180828
  Receipt Date: 20180828
  Transmission Date: 20181010
  Serious: No
  Sender: FDA-Public Use
  Company Number: US-MYLANLABS-2018M1062994

PATIENT
  Sex: Female

DRUGS (1)
  1. AMITRIPTYLINE HYDROCHLORIDE TABLETS, USP [Suspect]
     Active Substance: AMITRIPTYLINE HYDROCHLORIDE
     Indication: MIGRAINE
     Dosage: 25 MG, UNK
     Route: 048
     Dates: start: 20160304

REACTIONS (1)
  - Head discomfort [Not Recovered/Not Resolved]

NARRATIVE: CASE EVENT DATE: 20180806
